FAERS Safety Report 13060692 (Version 4)
Quarter: 2017Q1

REPORT INFORMATION
  Report Type: Spontaneous
  Country: JP (occurrence: JP)
  Receive Date: 20161225
  Receipt Date: 20170324
  Transmission Date: 20170428
  Serious: Yes (Death, Hospitalization, Other)
  Sender: FDA-Public Use
  Company Number: JP-ASTRAZENECA-2016SF09607

PATIENT
  Age: 31782 Day
  Sex: Male
  Weight: 39 kg

DRUGS (14)
  1. TAMSULOSIN HYDROCHLORIDE. [Concomitant]
     Active Substance: TAMSULOSIN HYDROCHLORIDE
     Indication: BENIGN PROSTATIC HYPERPLASIA
     Route: 048
     Dates: start: 20161029
  2. SOLU-MEDROL [Suspect]
     Active Substance: METHYLPREDNISOLONE SODIUM SUCCINATE
     Indication: INTERSTITIAL LUNG DISEASE
     Dosage: 25.0MG UNKNOWN
     Route: 041
     Dates: start: 20161014, end: 20161020
  3. BAYASPIRIN [Suspect]
     Active Substance: ASPIRIN
     Indication: MYOCARDIAL INFARCTION
     Route: 048
     Dates: end: 20161029
  4. SOLU-MEDROL [Suspect]
     Active Substance: METHYLPREDNISOLONE SODIUM SUCCINATE
     Indication: INTERSTITIAL LUNG DISEASE
     Dosage: 500.0MG UNKNOWN
     Route: 041
     Dates: start: 20160923, end: 20160929
  5. NAUZELIN [Concomitant]
     Active Substance: DOMPERIDONE
     Indication: GASTRITIS
     Route: 048
     Dates: start: 20161029
  6. ALLOPURINOL. [Concomitant]
     Active Substance: ALLOPURINOL
     Indication: HYPERURICAEMIA
     Route: 048
     Dates: start: 20161029
  7. IRESSA [Suspect]
     Active Substance: GEFITINIB
     Indication: LUNG ADENOCARCINOMA
     Route: 048
     Dates: start: 20160902, end: 20160923
  8. SOLU-MEDROL [Suspect]
     Active Substance: METHYLPREDNISOLONE SODIUM SUCCINATE
     Indication: INTERSTITIAL LUNG DISEASE
     Dosage: 30.0MG UNKNOWN
     Route: 041
     Dates: start: 20161007, end: 20161013
  9. IRESSA [Suspect]
     Active Substance: GEFITINIB
     Indication: NON-SMALL CELL LUNG CANCER
     Route: 048
     Dates: start: 20160902, end: 20160923
  10. AMPICILLIN AND SULBACTAM [Suspect]
     Active Substance: AMPICILLIN SODIUM\SULBACTAM SODIUM
     Dosage: DOSE UNKNOWN
     Route: 065
     Dates: start: 20161013
  11. SOLU-MEDROL [Suspect]
     Active Substance: METHYLPREDNISOLONE SODIUM SUCCINATE
     Indication: INTERSTITIAL LUNG DISEASE
     Dosage: 40.0MG UNKNOWN
     Route: 041
     Dates: start: 20160930, end: 20161006
  12. PROTECADIN [Concomitant]
     Active Substance: LAFUTIDINE
     Indication: GASTRIC ULCER
     Route: 048
     Dates: start: 20161029
  13. BROTIZOLAM [Concomitant]
     Active Substance: BROTIZOLAM
     Indication: INSOMNIA
     Route: 048
     Dates: start: 20161029
  14. TEPRENONE [Concomitant]
     Active Substance: TEPRENONE
     Indication: GASTRIC ULCER
     Route: 048
     Dates: start: 20161029

REACTIONS (5)
  - Decreased appetite [Unknown]
  - Interstitial lung disease [Recovering/Resolving]
  - Pneumonia aspiration [Fatal]
  - Malignant neoplasm progression [Unknown]
  - Gastrointestinal haemorrhage [Recovering/Resolving]

NARRATIVE: CASE EVENT DATE: 20160917
